FAERS Safety Report 11628972 (Version 1)
Quarter: 2015Q4

REPORT INFORMATION
  Report Type: Spontaneous
  Country: US (occurrence: None)
  Receive Date: 20151013
  Receipt Date: 20151013
  Transmission Date: 20160304
  Serious: Yes (Life-Threatening, Hospitalization, Disabling)
  Sender: FDA-Public Use
  Company Number: None

PATIENT
  Age: 35 Year
  Sex: Male
  Weight: 141.07 kg

DRUGS (7)
  1. CLOZAPINE 300MG [Suspect]
     Active Substance: CLOZAPINE
     Indication: SCHIZOPHRENIA
     Dosage: 2 PILLS
     Route: 048
     Dates: start: 201503
  2. HALDOL [Concomitant]
     Active Substance: HALOPERIDOL
  3. ATENOLOL. [Concomitant]
     Active Substance: ATENOLOL
  4. SENNA [Concomitant]
     Active Substance: SENNA LEAF\SENNOSIDES\SENNOSIDES A AND B
  5. DEPAKOTTE [Concomitant]
  6. LITHIUM. [Concomitant]
     Active Substance: LITHIUM
  7. COLACE [Concomitant]
     Active Substance: DOCUSATE SODIUM

REACTIONS (5)
  - Left ventricular hypertrophy [None]
  - Neuroleptic malignant syndrome [None]
  - Sepsis [None]
  - Blood creatine phosphokinase increased [None]
  - Heart rate increased [None]

NARRATIVE: CASE EVENT DATE: 20150730
